FAERS Safety Report 22346764 (Version 4)
Quarter: 2023Q4

REPORT INFORMATION
  Report Type: Report from Study
  Country: CL (occurrence: CL)
  Receive Date: 20230520
  Receipt Date: 20231019
  Transmission Date: 20240109
  Serious: Yes (Other)
  Sender: FDA-Public Use
  Company Number: CL-002147023-NVSC2022CL282776

PATIENT
  Age: 59 Year
  Sex: Female

DRUGS (3)
  1. COSENTYX [Suspect]
     Active Substance: SECUKINUMAB
     Indication: Psoriatic arthropathy
     Dosage: 300 MG, QMO
     Route: 058
     Dates: start: 20221124
  2. COSENTYX [Suspect]
     Active Substance: SECUKINUMAB
     Dosage: 150 MG, QMO
     Route: 058
     Dates: start: 20230511
  3. COSENTYX [Suspect]
     Active Substance: SECUKINUMAB
     Dosage: 300 MG
     Route: 065
     Dates: start: 20230806

REACTIONS (14)
  - Hyperthyroidism [Unknown]
  - Diabetes mellitus [Unknown]
  - Mobility decreased [Unknown]
  - Feeling abnormal [Unknown]
  - Arthritis [Unknown]
  - Illness [Unknown]
  - Osteoarthritis [Unknown]
  - Anaemia [Unknown]
  - Fibromyalgia [Unknown]
  - Hypertension [Unknown]
  - Asthenia [Unknown]
  - Depression [Unknown]
  - Memory impairment [Unknown]
  - Psoriasis [Unknown]
